FAERS Safety Report 5139044-3 (Version None)
Quarter: 2006Q4

REPORT INFORMATION
  Report Type: 
  Country: None (occurrence: None)
  Receive Date: 20061030
  Receipt Date: 20060612
  Transmission Date: 20070319
  Serious: Yes (Hospitalization)
  Sender: FDA-Public Use
  Company Number: US-GLAXOSMITHKLINE-A0608654A

PATIENT
  Age: 79 Year
  Sex: Female

DRUGS (5)
  1. ADVAIR HFA [Suspect]
     Indication: CHRONIC OBSTRUCTIVE PULMONARY DISEASE
     Dosage: 1PUFF TWICE PER DAY
     Route: 055
  2. ALBUTEROL [Concomitant]
  3. VITAMINS [Concomitant]
  4. ASPIRIN [Concomitant]
  5. OXYGEN [Concomitant]

REACTIONS (2)
  - CHEST PAIN [None]
  - DRUG INEFFECTIVE [None]
